FAERS Safety Report 7720444-X (Version None)
Quarter: 2011Q3

REPORT INFORMATION
  Report Type: 
  Country: None (occurrence: None)
  Receive Date: 20110830
  Receipt Date: 20110830
  Transmission Date: 20111222
  Serious: Yes (Life-Threatening, Hospitalization)
  Sender: FDA-Public Use
  Company Number: None

PATIENT
  Sex: Female
  Weight: 94.5 kg

DRUGS (1)
  1. PORTIA-21 [Suspect]
     Indication: FAMILIAL RISK FACTOR
     Dosage: PORTIA 0.15/30MCG TAB ONE A DAY ORAL
     Route: 048

REACTIONS (4)
  - CEREBROVASCULAR ACCIDENT [None]
  - INTRACRANIAL VENOUS SINUS THROMBOSIS [None]
  - MIDDLE INSOMNIA [None]
  - HEADACHE [None]
